FAERS Safety Report 17761683 (Version 1)
Quarter: 2020Q2

REPORT INFORMATION
  Report Type: Spontaneous
  Country: FR (occurrence: FR)
  Receive Date: 20200508
  Receipt Date: 20200508
  Transmission Date: 20200714
  Serious: Yes (Hospitalization)
  Sender: FDA-Public Use
  Company Number: FR-CADILA HEALTHCARE LIMITED-FR-ZYDUS-025479

PATIENT

DRUGS (14)
  1. LASILIX [Suspect]
     Active Substance: FUROSEMIDE
     Indication: HYPERTENSION
     Dosage: 2 DOSAGE FORM,(INTERVAL :1 DAYS)
     Route: 048
     Dates: end: 20160518
  2. AMLOR [Suspect]
     Active Substance: AMLODIPINE BESYLATE
     Indication: HYPERTENSION
     Dosage: 1 DOSAGE FORM,(INTERVAL :1 DAYS)
     Route: 048
  3. TAMSULOSIN [Suspect]
     Active Substance: TAMSULOSIN
     Indication: BENIGN PROSTATIC HYPERPLASIA
     Dosage: .4 MILLIGRAM,(INTERVAL :1 DAYS)
     Route: 048
     Dates: end: 20160518
  4. SPIRIVA [Suspect]
     Active Substance: TIOTROPIUM BROMIDE MONOHYDRATE
     Indication: RESPIRATORY FAILURE
     Dosage: 1 DOSAGE FORM,(INTERVAL :1 DAYS)
     Route: 055
     Dates: end: 20180518
  5. STAGID [Suspect]
     Active Substance: METFORMIN PAMOATE
     Indication: INSULIN-REQUIRING TYPE 2 DIABETES MELLITUS
     Dosage: 3 DOSAGE FORM,(INTERVAL :1 DAYS)
     Route: 048
     Dates: end: 20160518
  6. FINASTERIDE. [Concomitant]
     Active Substance: FINASTERIDE
     Dosage: ()
  7. LANTUS [Concomitant]
     Active Substance: INSULIN GLARGINE
     Dosage: ()
  8. PREVISCAN (FRANCE) [Suspect]
     Active Substance: FLUINDIONE
     Indication: ATRIAL FIBRILLATION
     Dosage: 1 DOSAGE FORM,(INTERVAL :1 DAYS)
     Route: 048
     Dates: end: 20160518
  9. HYPERIUM [Suspect]
     Active Substance: RILMENIDINE PHOSPHATE
     Indication: HYPERTENSION
     Dosage: 2 DOSAGE FORM,(INTERVAL :1 DAYS)
     Route: 048
     Dates: end: 20160518
  10. LIRAGLUTIDE [Suspect]
     Active Substance: LIRAGLUTIDE
     Indication: INSULIN-REQUIRING TYPE 2 DIABETES MELLITUS
     Dosage: 1 DOSAGE FORM,(INTERVAL :1 DAYS)
     Route: 058
     Dates: end: 20160518
  11. SYMBICORT [Concomitant]
     Active Substance: BUDESONIDE\FORMOTEROL FUMARATE DIHYDRATE
  12. BISOPROLOL [Suspect]
     Active Substance: BISOPROLOL
     Indication: CARDIAC FAILURE
     Dosage: 1.25 MILLIGRAM,(INTERVAL :1 DAYS)
     Route: 048
     Dates: end: 20160518
  13. PRAVASTATINE [Concomitant]
     Active Substance: PRAVASTATIN
  14. ATACAND [Suspect]
     Active Substance: CANDESARTAN CILEXETIL
     Indication: HYPERTENSION
     Dosage: 1 DOSAGE FORM,(INTERVAL :1 DAYS)
     Route: 048
     Dates: end: 20160518

REACTIONS (2)
  - Hyperkalaemia [Recovered/Resolved]
  - Acute kidney injury [Recovered/Resolved]

NARRATIVE: CASE EVENT DATE: 20160518
